FAERS Safety Report 7934519-3 (Version None)
Quarter: 2011Q4

REPORT INFORMATION
  Report Type: 
  Country: None (occurrence: None)
  Receive Date: 20111118
  Receipt Date: 20111104
  Transmission Date: 20120403
  Serious: Yes (Hospitalization)
  Sender: FDA-Public Use
  Company Number: DSA_48045_2011

PATIENT
  Age: 84 Year
  Sex: Female

DRUGS (6)
  1. ENALAPRIL MALEATE [Suspect]
     Indication: HYPERTENSION
     Dosage: (20 MG, DAILY ORAL)
     Route: 048
     Dates: start: 20090101, end: 20110802
  2. DAONIL (DAONIL) 5 MG (NOT SPECIFIED) [Suspect]
     Indication: TYPE 2 DIABETES MELLITUS
     Dosage: (5 MG QD ORAL)
     Route: 048
     Dates: start: 20090101, end: 20110802
  3. METFORMIN HYDROCHLORIDE [Suspect]
     Indication: TYPE 2 DIABETES MELLITUS
     Dosage: (850 MG QD ORAL)
     Route: 048
     Dates: start: 19990101, end: 20110802
  4. AMILORIDE HCL AND HYDROCHLOROTHIAZIDE [Suspect]
     Indication: HYPERTENSION
     Dosage: (5/50 MG TABLET ONCE DAILY ORAL)
     Route: 048
     Dates: start: 20090101, end: 20110802
  5. GLUCOBAY (GLUCOBAY) 50 MG (NOT SPECIFIED) [Suspect]
     Indication: TYPE 2 DIABETES MELLITUS
     Dosage: (50 MG BID, 12 YEARS ORAL)
     Route: 048
     Dates: start: 19990101, end: 20110802
  6. LEVOTHYROXINE SODIUM [Concomitant]

REACTIONS (3)
  - HYPOKALAEMIA [None]
  - METABOLIC ACIDOSIS [None]
  - RENAL FAILURE ACUTE [None]
